FAERS Safety Report 17364301 (Version 1)
Quarter: 2020Q1

REPORT INFORMATION
  Report Type: Report from Study
  Country: None (occurrence: CO)
  Receive Date: 20200204
  Receipt Date: 20200204
  Transmission Date: 20200409
  Serious: Yes (Other)
  Sender: FDA-Public Use
  Company Number: CO-ABBVIE-19K-036-3215754-00

PATIENT
  Age: 57 Year
  Sex: Female
  Weight: 85 kg

DRUGS (2)
  1. IMBRUVICA [Suspect]
     Active Substance: IBRUTINIB
     Indication: WALDENSTROM^S MACROGLOBULINAEMIA
     Route: 048
     Dates: start: 20191107, end: 20191223
  2. IMBRUVICA [Suspect]
     Active Substance: IBRUTINIB
     Route: 048

REACTIONS (8)
  - Proteinuria [Not Recovered/Not Resolved]
  - Abdominal pain upper [Not Recovered/Not Resolved]
  - Vulvovaginal swelling [Unknown]
  - Lung disorder [Not Recovered/Not Resolved]
  - Liver disorder [Not Recovered/Not Resolved]
  - Oral candidiasis [Not Recovered/Not Resolved]
  - Hepatitis [Not Recovered/Not Resolved]
  - Asthenia [Not Recovered/Not Resolved]

NARRATIVE: CASE EVENT DATE: 20191107
